FAERS Safety Report 10260944 (Version 2)
Quarter: 2014Q3

REPORT INFORMATION
  Report Type: Spontaneous
  Country: BR (occurrence: BR)
  Receive Date: 20140626
  Receipt Date: 20140819
  Transmission Date: 20150326
  Serious: Yes (Other)
  Sender: FDA-Public Use
  Company Number: BR-ROCHE-1423968

PATIENT
  Sex: Male
  Weight: 69 kg

DRUGS (8)
  1. ASPIRIN. [Concomitant]
     Active Substance: ASPIRIN
     Route: 048
     Dates: start: 2009
  2. XELODA [Suspect]
     Active Substance: CAPECITABINE
     Dosage: 5 TAB/D FOR 15 DAYS FOLLOWED BY INTERVAL OF 7 DAYS
     Route: 048
  3. BENICAR [Concomitant]
     Active Substance: OLMESARTAN MEDOXOMIL
     Indication: BLOOD PRESSURE
     Route: 048
     Dates: start: 2009
  4. XELODA [Suspect]
     Active Substance: CAPECITABINE
     Indication: COLORECTAL CANCER
     Route: 048
     Dates: start: 201311
  5. CONCOR [Concomitant]
     Active Substance: BISOPROLOL FUMARATE
     Route: 048
     Dates: start: 2009
  6. AVASTIN [Concomitant]
     Active Substance: BEVACIZUMAB
     Indication: COLORECTAL CANCER
     Dosage: ADMINISTERED INTRAVENOUSLY, THROUGH A CATHETER, WHICH IS WASHED WITH SALINE
     Route: 042
  7. BRILINTA [Concomitant]
     Active Substance: TICAGRELOR
     Route: 048
     Dates: start: 2009
  8. CITALOR [Concomitant]
     Active Substance: ATORVASTATIN
     Indication: BLOOD CHOLESTEROL
     Route: 048
     Dates: start: 2009

REACTIONS (8)
  - Skin discolouration [Recovered/Resolved]
  - Nail disorder [Recovered/Resolved]
  - Pain of skin [Recovered/Resolved]
  - Dyspnoea [Not Recovered/Not Resolved]
  - Skin exfoliation [Recovered/Resolved]
  - Flatulence [Recovered/Resolved]
  - Pleural effusion [Recovered/Resolved]
  - Diarrhoea [Recovered/Resolved]
